FAERS Safety Report 4361129-X (Version None)
Quarter: 2004Q2

REPORT INFORMATION
  Report Type: 
  Country: None (occurrence: None)
  Receive Date: 20040512
  Receipt Date: 20030618
  Transmission Date: 20050107
  Serious: Yes (Other)
  Sender: FDA-Public Use
  Company Number: CHPA2003US01475

PATIENT
  Age: 12 Year
  Sex: Male

DRUGS (1)
  1. TRANSDERM SCOP [Suspect]
     Indication: MOTION SICKNESS
     Dosage: 1 PATCH X 1, TRANSDERMAL
     Route: 062
     Dates: start: 20030405, end: 20030406

REACTIONS (4)
  - DISORIENTATION [None]
  - HALLUCINATION [None]
  - MYDRIASIS [None]
  - PSYCHOTIC DISORDER [None]
